FAERS Safety Report 8128773-5 (Version None)
Quarter: 2012Q1

REPORT INFORMATION
  Report Type: 
  Country: None (occurrence: None)
  Receive Date: 20120210
  Receipt Date: 20120201
  Transmission Date: 20120608
  Serious: Yes (Hospitalization)
  Sender: FDA-Public Use
  Company Number: US-PFIZER INC-2011245363

PATIENT
  Sex: Female
  Weight: 47.619 kg

DRUGS (12)
  1. GLIPIZIDE [Concomitant]
     Indication: DIABETES MELLITUS
     Dosage: 5 MG, 2X/DAY
     Route: 048
     Dates: start: 19990101
  2. ALTACE [Concomitant]
     Indication: HYPERTENSION
     Dosage: 10 MG, 1X/DAY
     Route: 048
     Dates: start: 19990101
  3. AXITINIB [Suspect]
     Indication: METASTATIC RENAL CELL CARCINOMA
     Dosage: 5 MG, 2X/DAY
     Route: 048
     Dates: start: 20100318, end: 20111012
  4. ACTOS [Concomitant]
     Indication: DIABETES MELLITUS
     Dosage: 15 MG, 1X/DAY
     Route: 048
     Dates: start: 19990101
  5. NORVASC [Concomitant]
     Indication: HYPERTENSION
     Dosage: 5 MG, 2X/DAY
     Route: 048
     Dates: start: 20100401
  6. LOMOTIL [Concomitant]
     Indication: DIARRHOEA
     Dosage: 4 MG, AS NEEDED
     Route: 048
     Dates: start: 20101027
  7. CHROMIUM PICOLINATE [Concomitant]
     Indication: SUPPLEMENTATION THERAPY
  8. CALCIUM CARBONATE [Concomitant]
  9. ACETYLSALICYLIC ACID [Concomitant]
     Indication: PROPHYLAXIS
     Dosage: 81 MG, 1X/DAY
     Dates: start: 20050101
  10. LOPERAMIDE HYDROCHLORIDE [Concomitant]
     Indication: DIARRHOEA
     Dosage: 1 TAB
     Route: 048
     Dates: start: 20100810
  11. SYNTHROID [Concomitant]
     Indication: HYPOTHYROIDISM
     Dosage: 75 MG, 1X/DAY
     Route: 048
     Dates: start: 20100712
  12. FISH OIL [Concomitant]
     Indication: SUPPLEMENTATION THERAPY

REACTIONS (2)
  - POSTOPERATIVE WOUND INFECTION [None]
  - OPEN WOUND [None]
